FAERS Safety Report 12177776 (Version 4)
Quarter: 2016Q2

REPORT INFORMATION
  Report Type: Spontaneous
  Country: US (occurrence: US)
  Receive Date: 20160314
  Receipt Date: 20160615
  Transmission Date: 20160815
  Serious: Yes (Other)
  Sender: FDA-Public Use
  Company Number: US-BAYER-2016-046869

PATIENT
  Sex: Female
  Weight: 29.25 kg

DRUGS (1)
  1. AFRIN ORIGINAL [Suspect]
     Active Substance: OXYMETAZOLINE HYDROCHLORIDE
     Indication: NASAL CONGESTION
     Dosage: 2 DF, 2 OR 3 TIMES A DAY
     Route: 055

REACTIONS (6)
  - Product closure removal difficult [None]
  - Product package associated injury [None]
  - Drug dependence [None]
  - Blister [None]
  - Product use issue [None]
  - Intentional product use issue [None]
